FAERS Safety Report 6291229-9 (Version None)
Quarter: 2009Q3

REPORT INFORMATION
  Report Type: 
  Country: None (occurrence: None)
  Receive Date: 20090730
  Receipt Date: 20090722
  Transmission Date: 20100115
  Serious: Yes (Hospitalization)
  Sender: FDA-Public Use
  Company Number: R0003788A

PATIENT
  Age: 82 Year
  Sex: Female

DRUGS (1)
  1. BLINDED VACCINE [Suspect]
     Route: 030
     Dates: start: 20081020, end: 20081020

REACTIONS (2)
  - ORTHOSTATIC HYPOTENSION [None]
  - SICK SINUS SYNDROME [None]
